FAERS Safety Report 18424041 (Version 1)
Quarter: 2020Q4

REPORT INFORMATION
  Report Type: Spontaneous
  Country: US (occurrence: US)
  Receive Date: 20201025
  Receipt Date: 20201025
  Transmission Date: 20210114
  Serious: No
  Sender: FDA-Public Use
  Company Number: US-ASTRAZENECA-2020SF35235

PATIENT
  Sex: Female

DRUGS (1)
  1. FARXIGA [Suspect]
     Active Substance: DAPAGLIFLOZIN PROPANEDIOL
     Indication: BLOOD GLUCOSE DECREASED
     Dosage: ONE TABLET EVERY OTHER DAY
     Route: 048
     Dates: start: 2020

REACTIONS (2)
  - Pruritus genital [Unknown]
  - Urinary tract infection [Unknown]
